FAERS Safety Report 16090619 (Version 1)
Quarter: 2019Q1

REPORT INFORMATION
  Report Type: Spontaneous
  Country: US (occurrence: US)
  Receive Date: 20190319
  Receipt Date: 20190319
  Transmission Date: 20190418
  Serious: No
  Sender: FDA-Public Use
  Company Number: US-PERRIGO-18US007837

PATIENT
  Sex: Male

DRUGS (1)
  1. LORATADINE AND PSEUDOEPHEDRINE SULFATE [Suspect]
     Active Substance: LORATADINE\PSEUDOEPHEDRINE SULFATE
     Indication: PRODUCT USED FOR UNKNOWN INDICATION
     Dosage: 1 TABLET (CUT IN 1/2), QD
     Route: 048
     Dates: start: 201806

REACTIONS (3)
  - Drug ineffective [Unknown]
  - Wrong technique in product usage process [Unknown]
  - Incorrect product administration duration [Unknown]

NARRATIVE: CASE EVENT DATE: 201806
